FAERS Safety Report 8840406 (Version 1)
Quarter: 2012Q4

REPORT INFORMATION
  Report Type: 
  Country: US (occurrence: US)
  Receive Date: 20121015
  Receipt Date: 20121015
  Transmission Date: 20130627
  Serious: Yes (Other)
  Sender: FDA-Public Use
  Company Number: US-CELGENEUS-163-21880-12100859

PATIENT
  Sex: Male

DRUGS (5)
  1. REVLIMID [Suspect]
     Indication: MDS
     Dosage: 5 Milligram
     Route: 048
     Dates: start: 201101
  2. REVLIMID [Suspect]
     Dosage: 5 Milligram
     Route: 048
     Dates: start: 201106
  3. REVLIMID [Suspect]
     Dosage: 25 Milligram
     Route: 048
     Dates: start: 201207
  4. REVLIMID [Suspect]
     Dosage: 2.5 Milligram
     Route: 048
     Dates: start: 201210
  5. COUMADIN [Concomitant]
     Indication: DRUG USE FOR UNKNOWN INDICATION
     Route: 065

REACTIONS (1)
  - Malignant melanoma in situ [Unknown]
